FAERS Safety Report 7421803-5 (Version None)
Quarter: 2011Q2

REPORT INFORMATION
  Report Type: 
  Country: None (occurrence: None)
  Receive Date: 20110418
  Receipt Date: 20110412
  Transmission Date: 20111010
  Serious: Yes (Hospitalization)
  Sender: FDA-Public Use
  Company Number: CH-EISAI INC-E2090-01564-SPO-CH

PATIENT
  Age: 25 Year
  Sex: Female

DRUGS (4)
  1. ZONISAMIDE [Suspect]
     Route: 048
  2. LACOSAMIDE [Concomitant]
     Route: 048
  3. CLOBAZAM [Concomitant]
     Route: 048
  4. ZONISAMIDE [Suspect]
     Route: 048

REACTIONS (11)
  - ELECTROCARDIOGRAM QT PROLONGED [None]
  - POLYURIA [None]
  - ELECTROCARDIOGRAM QRS COMPLEX PROLONGED [None]
  - MYOCLONUS [None]
  - SOMNOLENCE [None]
  - DEPRESSED LEVEL OF CONSCIOUSNESS [None]
  - OVERDOSE [None]
  - METABOLIC ACIDOSIS [None]
  - VOMITING [None]
  - DIPLOPIA [None]
  - SUICIDAL IDEATION [None]
